FAERS Safety Report 8797476 (Version 7)
Quarter: 2013Q4

REPORT INFORMATION
  Report Type: Spontaneous
  Country: US (occurrence: US)
  Receive Date: 20120920
  Receipt Date: 20131126
  Transmission Date: 20140711
  Serious: Yes (Hospitalization, Other)
  Sender: FDA-Public Use
  Company Number: US-009507513-1202USA00828

PATIENT
  Sex: Female
  Weight: 55.33 kg

DRUGS (2)
  1. FOSAMAX [Suspect]
     Indication: OSTEOPOROSIS PROPHYLAXIS
     Dosage: 70 MG, QW
     Route: 048
     Dates: start: 20030207, end: 201006
  2. VITAMINS (UNSPECIFIED) [Concomitant]
     Dosage: UNK, QD

REACTIONS (16)
  - Femur fracture [Unknown]
  - Intramedullary rod insertion [Unknown]
  - Deep vein thrombosis [Unknown]
  - Deep vein thrombosis [Unknown]
  - Lung neoplasm malignant [Unknown]
  - Humerus fracture [Unknown]
  - Lip and/or oral cavity cancer [Unknown]
  - Upper limb fracture [Unknown]
  - Osteoporosis [Unknown]
  - Arthritis [Unknown]
  - Fall [Unknown]
  - Emphysema [Unknown]
  - Depression [Unknown]
  - Hypertension [Unknown]
  - Anxiety [Unknown]
  - Hysterectomy [Unknown]
